FAERS Safety Report 8358259-4 (Version None)
Quarter: 2012Q2

REPORT INFORMATION
  Report Type: 
  Country: None (occurrence: None)
  Receive Date: 20120514
  Receipt Date: 20120507
  Transmission Date: 20120825
  Serious: Yes (Hospitalization)
  Sender: FDA-Public Use
  Company Number: US-VERTEX PHARMACEUTICALS INC.-AE-2012-006542

PATIENT
  Sex: Male

DRUGS (13)
  1. METFORMIN HCL [Concomitant]
  2. GABAPENTIN [Concomitant]
  3. PEGASYS [Concomitant]
     Indication: HEPATITIS C
     Route: 058
     Dates: start: 20120416, end: 20120430
  4. LINSIOPRIL/HCTZ [Concomitant]
  5. RIBAVIRIN [Concomitant]
     Indication: HEPATITIS C
     Route: 048
     Dates: start: 20120416
  6. ATARAX [Concomitant]
  7. PRAVASTATIN [Concomitant]
  8. FLOMAX [Concomitant]
  9. ASPIRIN [Concomitant]
  10. LYRICA [Concomitant]
  11. AVELOX [Concomitant]
  12. INCIVEK [Suspect]
     Indication: HEPATITIS C
     Route: 048
     Dates: start: 20120416, end: 20120501
  13. VITAMIN B-12 [Concomitant]

REACTIONS (1)
  - PNEUMONIA [None]
